FAERS Safety Report 17313847 (Version 1)
Quarter: 2020Q1

REPORT INFORMATION
  Report Type: Spontaneous
  Country: NL (occurrence: NL)
  Receive Date: 20200124
  Receipt Date: 20200124
  Transmission Date: 20200409
  Serious: Yes (Hospitalization)
  Sender: FDA-Public Use
  Company Number: NL-SUN PHARMACEUTICAL INDUSTRIES LTD-2020RR-234401

PATIENT
  Sex: Male
  Weight: 100 kg

DRUGS (7)
  1. ALFACALCIDOL [Concomitant]
     Active Substance: ALFACALCIDOL
     Indication: PRODUCT USED FOR UNKNOWN INDICATION
     Dosage: CAPSULE, 0,25 MG (MICROGRAM)
     Route: 065
  2. TAMSULOSIN [Suspect]
     Active Substance: TAMSULOSIN
     Indication: MICTURITION DISORDER
     Dosage: CAPSULE MET GEREGULEERDE AFGIFTE, 0,4 MG (MILLIGRAM), 1 KEER PER DAG, 1
     Dates: start: 20191203, end: 20191210
  3. SEVELAMEER [Concomitant]
     Indication: PRODUCT USED FOR UNKNOWN INDICATION
     Dosage: TABLET, 800 MG (MILLIGRAM)
     Route: 065
  4. CALCIUMCARBONAAT [Concomitant]
     Indication: PRODUCT USED FOR UNKNOWN INDICATION
     Dosage: KAUWTABLET, 1,25 G (GRAM)
     Route: 065
  5. NATRIUM WATERST OF CARBONAAT [Concomitant]
     Indication: PRODUCT USED FOR UNKNOWN INDICATION
     Dosage: TABLET, 500 MG (MILLIGRAM)
     Route: 065
  6. DUTASTERIDE. [Concomitant]
     Active Substance: DUTASTERIDE
     Indication: PRODUCT USED FOR UNKNOWN INDICATION
     Dosage: CAPSULE, 0,5 MG (MILLIGRAM)
  7. MOVICOLON [Concomitant]
     Active Substance: POLYETHYLENE GLYCOL 3350\POTASSIUM CHLORIDE\SODIUM BICARBONATE\SODIUM CHLORIDE
     Indication: PRODUCT USED FOR UNKNOWN INDICATION
     Dosage: POEDER VOOR DRANK
     Route: 065

REACTIONS (1)
  - Orthostatic hypotension [Recovered/Resolved]
